FAERS Safety Report 6615930-X (Version None)
Quarter: 2010Q1

REPORT INFORMATION
  Report Type: 
  Country: None (occurrence: None)
  Receive Date: 20100305
  Receipt Date: 20100224
  Transmission Date: 20100710
  Serious: Yes (Life-Threatening, Hospitalization, Disabling)
  Sender: FDA-Public Use
  Company Number: GXKR2010PL02302

PATIENT
  Sex: Female
  Weight: 65 kg

DRUGS (1)
  1. BROMERGON (NGX) [Suspect]
     Indication: LACTATION INHIBITION THERAPY
     Dosage: 2.5 MG, BID
     Route: 048
     Dates: start: 20090916, end: 20091002

REACTIONS (10)
  - BRAIN INJURY [None]
  - CARDIAC ARREST [None]
  - CEREBRAL ISCHAEMIA [None]
  - CORONARY ANGIOPLASTY [None]
  - DYSPNOEA [None]
  - MEMORY IMPAIRMENT [None]
  - MYOCARDIAL INFARCTION [None]
  - PULMONARY EMBOLISM [None]
  - RESUSCITATION [None]
  - SPEECH DISORDER [None]
